FAERS Safety Report 12229504 (Version 1)
Quarter: 2016Q2

REPORT INFORMATION
  Report Type: Spontaneous
  Country: US (occurrence: US)
  Receive Date: 20160401
  Receipt Date: 20160401
  Transmission Date: 20160815
  Serious: No
  Sender: FDA-Public Use
  Company Number: US-ACTAVIS-2015-18256

PATIENT
  Age: 24 Year
  Sex: Male

DRUGS (1)
  1. NICOTINE POLACRILEX [Suspect]
     Active Substance: NICOTINE
     Indication: NICOTINE DEPENDENCE
     Dosage: 4 MG, PRN EVERY TIME HE HAS DESIRE TO SMOKE
     Route: 048

REACTIONS (1)
  - Drug ineffective [Not Recovered/Not Resolved]
